FAERS Safety Report 16469525 (Version 2)
Quarter: 2020Q3

REPORT INFORMATION
  Report Type: Report from Study
  Country: US (occurrence: US)
  Receive Date: 20190624
  Receipt Date: 20200928
  Transmission Date: 20201102
  Serious: No
  Sender: FDA-Public Use
  Company Number: US-SA-2019SA165764

PATIENT

DRUGS (2)
  1. ALEMTUZUMAB [Suspect]
     Active Substance: ALEMTUZUMAB
     Indication: MULTIPLE SCLEROSIS
     Dosage: 12 MG, QD
     Route: 041
     Dates: start: 20170815, end: 20170817
  2. ALEMTUZUMAB [Suspect]
     Active Substance: ALEMTUZUMAB
     Dosage: 12 MG, QD
     Route: 041
     Dates: start: 20160801, end: 20160805

REACTIONS (1)
  - Condition aggravated [Unknown]

NARRATIVE: CASE EVENT DATE: 201805
